FAERS Safety Report 23177503 (Version 1)
Quarter: 2023Q4

REPORT INFORMATION
  Report Type: Spontaneous
  Country: CN (occurrence: CN)
  Receive Date: 20231113
  Receipt Date: 20231113
  Transmission Date: 20240110
  Serious: Yes (Other)
  Sender: FDA-Public Use
  Company Number: CN-BAYER-2023A161471

PATIENT
  Age: 45 Year
  Sex: Male
  Weight: 82 kg

DRUGS (4)
  1. ULTRAVIST [Suspect]
     Active Substance: IOPROMIDE
     Indication: Angiogram
     Dosage: 100 ML, ONCE
     Route: 040
     Dates: start: 20231013, end: 20231013
  2. ULTRAVIST [Suspect]
     Active Substance: IOPROMIDE
     Indication: Angiogram
     Dosage: 100 ML, QD
     Route: 042
     Dates: start: 20231016, end: 20231016
  3. SODIUM CHLORIDE [Concomitant]
     Active Substance: SODIUM CHLORIDE
     Indication: Vehicle solution use
     Dosage: 100 ML, QD
     Route: 040
     Dates: start: 20231013, end: 20231013
  4. SODIUM CHLORIDE [Concomitant]
     Active Substance: SODIUM CHLORIDE
     Indication: Vehicle solution use
     Dosage: 100 ML, ONCE
     Route: 042
     Dates: start: 20231016, end: 20231016

REACTIONS (2)
  - Drug-induced liver injury [Unknown]
  - Hepatic enzyme increased [Unknown]

NARRATIVE: CASE EVENT DATE: 20231019
